FAERS Safety Report 13874103 (Version 5)
Quarter: 2020Q2

REPORT INFORMATION
  Report Type: Report from Study
  Country: US (occurrence: US)
  Receive Date: 20170816
  Receipt Date: 20200526
  Transmission Date: 20200713
  Serious: Yes (Hospitalization)
  Sender: FDA-Public Use
  Company Number: US-ACTELION-A-NJ2017-157956

PATIENT
  Age: 26 Year
  Sex: Female
  Weight: 113.38 kg

DRUGS (5)
  1. MOTRIN [Concomitant]
     Active Substance: IBUPROFEN
     Dosage: 200 MG, PRN
     Route: 048
  2. FLONASE [Concomitant]
     Active Substance: FLUTICASONE PROPIONATE
     Dosage: 50 MCG, UNK
     Route: 045
  3. OPSUMIT [Suspect]
     Active Substance: MACITENTAN
     Indication: PULMONARY ARTERIAL HYPERTENSION
     Dosage: UNK
     Route: 048
     Dates: start: 20160601, end: 20190828
  4. FERROUS SULFATE. [Concomitant]
     Active Substance: FERROUS SULFATE
     Dosage: 325 MG, QD
     Route: 048
  5. LASIX [Concomitant]
     Active Substance: FUROSEMIDE
     Dosage: 20 MG, QD
     Route: 048

REACTIONS (7)
  - Antinuclear antibody positive [Unknown]
  - Pericardial effusion [Unknown]
  - Rheumatoid factor positive [Unknown]
  - Blood bilirubin increased [Unknown]
  - Fluid overload [Recovered/Resolved]
  - Pulmonary hypertension [Recovered/Resolved]
  - Cor pulmonale [Recovered/Resolved]

NARRATIVE: CASE EVENT DATE: 20170522
